FAERS Safety Report 7757654-1 (Version None)
Quarter: 2011Q3

REPORT INFORMATION
  Report Type: 
  Country: None (occurrence: None)
  Receive Date: 20110916
  Receipt Date: 20110902
  Transmission Date: 20111222
  Serious: Yes (Other)
  Sender: FDA-Public Use
  Company Number: PHHY2011BR79636

PATIENT
  Sex: Female

DRUGS (2)
  1. EXFORGE [Suspect]
     Indication: HYPERTENSION
     Dosage: 1 DF (160/5 MG) DAILY
     Route: 048
  2. EXFORGE [Suspect]
     Dosage: 0.5 DF (160/5 MG) DAILY
     Route: 048

REACTIONS (6)
  - VASODILATATION [None]
  - ASTHENOPIA [None]
  - HEAD DISCOMFORT [None]
  - BLOOD MAGNESIUM DECREASED [None]
  - HEADACHE [None]
  - BLOOD PRESSURE INADEQUATELY CONTROLLED [None]
